FAERS Safety Report 4332811-5 (Version None)
Quarter: 2004Q1

REPORT INFORMATION
  Report Type: 
  Country: None (occurrence: None)
  Receive Date: 20040330
  Receipt Date: 20040318
  Transmission Date: 20041129
  Serious: No
  Sender: FDA-Public Use
  Company Number: 2004-113999-NL

PATIENT
  Age: 78 Year
  Sex: Male

DRUGS (7)
  1. VECURONIUM BROMIDE [Suspect]
     Indication: HYPOTONIA
     Route: 042
     Dates: start: 20030801, end: 20030801
  2. THIAMYLAL [Suspect]
     Indication: INDUCTION AND MAINTENANCE OF ANAESTHESIA
     Route: 042
     Dates: start: 20030801, end: 20030801
  3. SEVOFLURANE [Suspect]
     Indication: MAINTENANCE OF ANAESTHESIA
     Route: 055
     Dates: start: 20030801, end: 20030801
  4. ATROPINE SULFATE [Suspect]
     Indication: PREMEDICATION
     Dosage: 0.5 MG ONCE
     Route: 030
     Dates: start: 20030801, end: 20030801
  5. HYDROXYZINE [Suspect]
     Indication: PREMEDICATION
     Dosage: 25 MG ONCE
     Route: 030
     Dates: start: 20030801, end: 20030801
  6. OXYGEN [Concomitant]
  7. NITROUS OXIDE [Concomitant]

REACTIONS (3)
  - ANAESTHETIC COMPLICATION [None]
  - BRADYCARDIA [None]
  - HYPOTENSION [None]
